FAERS Safety Report 7163275-4 (Version None)
Quarter: 2010Q4

REPORT INFORMATION
  Report Type: 
  Country: None (occurrence: None)
  Receive Date: 20101215
  Receipt Date: 20100315
  Transmission Date: 20110411
  Serious: No
  Sender: FDA-Public Use
  Company Number: US-MYLANLABS-2010S1002315

PATIENT
  Age: 58 Year
  Sex: Female
  Weight: 68.95 kg

DRUGS (2)
  1. OXYBUTYNIN CHLORIDE [Suspect]
     Indication: HYPERTONIC BLADDER
     Route: 048
     Dates: start: 20100121, end: 20100125
  2. HYDROCHLOROTHIAZIDE [Concomitant]
     Route: 048

REACTIONS (1)
  - VULVOVAGINAL PRURITUS [None]
